FAERS Safety Report 15744115 (Version 4)
Quarter: 2019Q4

REPORT INFORMATION
  Report Type: Report from Study
  Country: DE (occurrence: DE)
  Receive Date: 20181220
  Receipt Date: 20191031
  Transmission Date: 20200122
  Serious: Yes (Hospitalization, Disabling, Other)
  Sender: FDA-Public Use
  Company Number: DE-ROCHE-2200894

PATIENT
  Age: 55 Year
  Sex: Female

DRUGS (11)
  1. OCREVUS [Suspect]
     Active Substance: OCRELIZUMAB
     Route: 042
     Dates: start: 20180918, end: 20180918
  2. EMSELEX [DARIFENACIN] [Concomitant]
     Indication: BLADDER DYSFUNCTION
     Route: 065
  3. SATIVEX [Concomitant]
     Active Substance: NABIXIMOLS
     Dosage: 4-8 DF
     Route: 065
  4. FAMPYRA [Concomitant]
     Active Substance: DALFAMPRIDINE
     Indication: GAIT DISTURBANCE
     Dosage: 1-0-1
     Route: 065
  5. OCREVUS [Suspect]
     Active Substance: OCRELIZUMAB
     Indication: RELAPSING-REMITTING MULTIPLE SCLEROSIS
     Route: 042
     Dates: start: 20180321, end: 201804
  6. BACLOFEN. [Concomitant]
     Active Substance: BACLOFEN
     Indication: BLADDER DYSFUNCTION
     Dosage: 10-25 MG; 10MG- 0 - 25MG
     Route: 065
  7. EMSELEX [DARIFENACIN] [Concomitant]
     Route: 065
  8. PANTOPRAZOLE [Concomitant]
     Active Substance: PANTOPRAZOLE
     Route: 065
  9. ESCITALOPRAM [Concomitant]
     Active Substance: ESCITALOPRAM OXALATE
     Indication: DEPRESSED MOOD
     Route: 065
  10. VITAMIN D3 [Concomitant]
     Active Substance: CHOLECALCIFEROL
  11. DEKRISTOL [Concomitant]
     Active Substance: CHOLECALCIFEROL
     Route: 065

REACTIONS (8)
  - Breast cancer [Recovered/Resolved]
  - Oropharyngeal pain [Recovered/Resolved]
  - Nasopharyngitis [Recovered/Resolved]
  - Inflammation of wound [Recovered/Resolved]
  - Basal cell carcinoma [Recovered/Resolved]
  - Multiple sclerosis relapse [Recovered/Resolved]
  - Haematoma [Not Recovered/Not Resolved]
  - Pain [Not Recovered/Not Resolved]

NARRATIVE: CASE EVENT DATE: 201804
